FAERS Safety Report 17556482 (Version 1)
Quarter: 2020Q1

REPORT INFORMATION
  Report Type: Spontaneous
  Country: US (occurrence: US)
  Receive Date: 20200310
  Receipt Date: 20200310
  Transmission Date: 20200409
  Serious: No
  Sender: FDA-Public Use
  Company Number: None

PATIENT

DRUGS (2)
  1. RETACRIT [Suspect]
     Active Substance: EPOETIN ALFA-EPBX
  2. PROCRIT [Suspect]
     Active Substance: ERYTHROPOIETIN

REACTIONS (3)
  - Product label confusion [None]
  - Product name confusion [None]
  - Wrong product stored [None]
